FAERS Safety Report 4791921-9 (Version None)
Quarter: 2005Q4

REPORT INFORMATION
  Report Type: 
  Country: None (occurrence: None)
  Receive Date: 20051005
  Receipt Date: 20050922
  Transmission Date: 20060501
  Serious: Yes (Death, Other)
  Sender: FDA-Public Use
  Company Number: 2005-BP-16792RO

PATIENT
  Age: 68 Year
  Sex: Male

DRUGS (2)
  1. CLARITHROMYCIN [Suspect]
     Indication: PNEUMONIA
     Dosage: 500 MG BID, PO
     Route: 048
  2. COLCHICINE (COLCHICINE) [Suspect]
     Indication: GOUT
     Dosage: 0.5 MG TID, PO
     Route: 048

REACTIONS (7)
  - BONE MARROW FAILURE [None]
  - DIARRHOEA [None]
  - DRUG INTERACTION [None]
  - GOUT [None]
  - NAUSEA [None]
  - PANCYTOPENIA [None]
  - VOMITING [None]
